FAERS Safety Report 6816246-9 (Version None)
Quarter: 2010Q3

REPORT INFORMATION
  Report Type: 
  Country: None (occurrence: None)
  Receive Date: 20100702
  Receipt Date: 20100702
  Transmission Date: 20110219
  Serious: Yes (Death)
  Sender: FDA-Public Use
  Company Number: None

PATIENT
  Age: 88 Year
  Sex: Male
  Weight: 92.1 kg

DRUGS (2)
  1. SEROQUEL [Suspect]
     Indication: AGITATION
     Dosage: 25 MG ONCE PO
     Route: 048
  2. AMBIEN [Suspect]
     Indication: SOMNOLENCE
     Dosage: 5 MG ONCE PO
     Route: 048

REACTIONS (7)
  - AGGRESSION [None]
  - AGITATION [None]
  - ARRHYTHMIA [None]
  - CONFUSIONAL STATE [None]
  - RESUSCITATION [None]
  - VENTRICULAR FIBRILLATION [None]
  - VENTRICULAR TACHYCARDIA [None]
